FAERS Safety Report 5885320-6 (Version None)
Quarter: 2008Q3

REPORT INFORMATION
  Report Type: 
  Country: None (occurrence: None)
  Receive Date: 20080916
  Receipt Date: 20080904
  Transmission Date: 20090109
  Serious: Yes (Hospitalization)
  Sender: FDA-Public Use
  Company Number: DE-PFIZER INC-2008074541

PATIENT
  Age: 22 Year
  Sex: Female

DRUGS (1)
  1. DEPO-CLINOVIR [Suspect]
     Indication: CONTRACEPTION
     Route: 030
     Dates: start: 20080601

REACTIONS (1)
  - PANCREATITIS RELAPSING [None]
